FAERS Safety Report 7718228-1 (Version None)
Quarter: 2011Q3

REPORT INFORMATION
  Report Type: 
  Country: None (occurrence: None)
  Receive Date: 20110830
  Receipt Date: 20110822
  Transmission Date: 20111222
  Serious: Yes (Other)
  Sender: FDA-Public Use
  Company Number: PHFR2011GB04645

PATIENT
  Sex: Male

DRUGS (2)
  1. DIAZEPAM [Concomitant]
     Indication: STATUS EPILEPTICUS
     Dosage: UNK, PRN
     Route: 054
  2. TEGRETOL [Suspect]
     Indication: EPILEPSY
     Dosage: UNK
     Route: 065

REACTIONS (1)
  - EPILEPSY [None]
